FAERS Safety Report 8319356-2 (Version None)
Quarter: 2012Q2

REPORT INFORMATION
  Report Type: 
  Country: None (occurrence: None)
  Receive Date: 20120427
  Receipt Date: 20120419
  Transmission Date: 20120825
  Serious: Yes (Other)
  Sender: FDA-Public Use
  Company Number: US-ASTRAZENECA-2012SE25978

PATIENT
  Age: 66 Year
  Sex: Male

DRUGS (3)
  1. NEXIUM [Suspect]
     Route: 048
  2. 4-5 INHALERS [Concomitant]
  3. BREATHING PILLS [Concomitant]

REACTIONS (1)
  - ARTHROPATHY [None]
